FAERS Safety Report 7121589-8 (Version None)
Quarter: 2010Q4

REPORT INFORMATION
  Report Type: 
  Country: None (occurrence: None)
  Receive Date: 20101124
  Receipt Date: 20101111
  Transmission Date: 20110411
  Serious: Yes (Hospitalization, Disabling, Other)
  Sender: FDA-Public Use
  Company Number: US-ELI_LILLY_AND_COMPANY-US201006001123

PATIENT
  Sex: Female

DRUGS (14)
  1. FORTEO [Suspect]
     Indication: OSTEOPOROSIS
     Dosage: 20 UG, DAILY (1/D)
     Dates: start: 20081101, end: 20100201
  2. FORTEO [Suspect]
     Dosage: 20 UG, DAILY (1/D)
     Dates: start: 20101001
  3. ENBREL [Concomitant]
  4. PROTONIX [Concomitant]
  5. LABETALOL HCL [Concomitant]
  6. NORVASC [Concomitant]
  7. CELEXA [Concomitant]
  8. VOLTAREN [Concomitant]
  9. PREDNISONE [Concomitant]
     Dosage: 5 MG, UNK
  10. VESICARE [Concomitant]
  11. VICODIN [Concomitant]
     Indication: PAIN
  12. SKELAXIN [Concomitant]
     Indication: PAIN
  13. VITAMIN D [Concomitant]
  14. ASCORBIC ACID [Concomitant]

REACTIONS (6)
  - ABASIA [None]
  - MOVEMENT DISORDER [None]
  - NERVE COMPRESSION [None]
  - RHEUMATOID ARTHRITIS [None]
  - STAPHYLOCOCCAL INFECTION [None]
  - STAPHYLOCOCCAL SEPSIS [None]
